FAERS Safety Report 4354202-3 (Version None)
Quarter: 2004Q2

REPORT INFORMATION
  Report Type: 
  Country: None (occurrence: None)
  Receive Date: 20040506
  Receipt Date: 20040428
  Transmission Date: 20050107
  Serious: Yes (Other)
  Sender: FDA-Public Use
  Company Number: PHNU2004DE01693

PATIENT
  Sex: Female

DRUGS (2)
  1. TEGRETOL [Suspect]
     Indication: TRIGEMINAL NEURALGIA
     Dosage: 800MG/DAY
     Route: 065
     Dates: start: 19890101
  2. ASPIRIN [Concomitant]

REACTIONS (2)
  - RETINAL VEIN THROMBOSIS [None]
  - THROMBOSIS [None]
